FAERS Safety Report 18045717 (Version 5)
Quarter: 2020Q3

REPORT INFORMATION
  Report Type: Spontaneous
  Country: VE (occurrence: VE)
  Receive Date: 20200720
  Receipt Date: 20200813
  Transmission Date: 20201103
  Serious: Yes (Hospitalization, Other)
  Sender: FDA-Public Use
  Company Number: VE-BRISTOL-MYERS SQUIBB COMPANY-BMS-2020-057343

PATIENT
  Sex: Male
  Weight: 81 kg

DRUGS (3)
  1. OPDIVO [Suspect]
     Active Substance: NIVOLUMAB
     Dosage: UNK
     Dates: start: 20190716
  2. OPDIVO [Suspect]
     Active Substance: NIVOLUMAB
     Indication: METASTATIC MALIGNANT MELANOMA
     Dosage: 200 MILLIGRAM, Q2WK
     Route: 042
     Dates: start: 20200702
  3. PIPERACILIN/TAZOBACTAM [Concomitant]
     Active Substance: PIPERACILLIN SODIUM\TAZOBACTAM SODIUM
     Indication: PRODUCT USED FOR UNKNOWN INDICATION
     Dosage: UNK
     Route: 065

REACTIONS (14)
  - Skin ulcer haemorrhage [Unknown]
  - Pseudomonas infection [Unknown]
  - Haemoglobin decreased [Unknown]
  - Product supply issue [Unknown]
  - Cellulitis [Unknown]
  - Malignant neoplasm progression [Unknown]
  - Intentional product misuse [Unknown]
  - Fatigue [Unknown]
  - Escherichia infection [Unknown]
  - Thermal burn [Unknown]
  - Anaemia [Unknown]
  - Weight decreased [Unknown]
  - Lymph gland infection [Unknown]
  - Off label use [Unknown]
